FAERS Safety Report 20430839 (Version 1)
Quarter: 2022Q1

REPORT INFORMATION
  Report Type: Report from Study
  Country: US (occurrence: US)
  Receive Date: 20220204
  Receipt Date: 20220204
  Transmission Date: 20220423
  Serious: Yes (Life-Threatening, Hospitalization)
  Sender: FDA-Public Use
  Company Number: US-SERVIER-S21006708

PATIENT

DRUGS (6)
  1. PEGASPARGASE [Suspect]
     Active Substance: PEGASPARGASE
     Indication: Acute lymphocytic leukaemia
     Dosage: 2500 IU/M?, ON D6
     Route: 042
     Dates: start: 20210506, end: 20210506
  2. DEXAMETHASONE [Suspect]
     Active Substance: DEXAMETHASONE
     Indication: Acute lymphocytic leukaemia
     Dosage: 6 MG/M?, D1 TO D32
     Route: 042
     Dates: start: 20210501, end: 20210601
  3. VINCRISTINE SULFATE [Suspect]
     Active Substance: VINCRISTINE SULFATE
     Indication: Acute lymphocytic leukaemia
     Dosage: 1.5 MG/M?, D4, D11, D18, AND D25
     Route: 042
     Dates: start: 20210504, end: 20210525
  4. CYTARABINE [Suspect]
     Active Substance: CYTARABINE
     Indication: Acute lymphocytic leukaemia
     Dosage: 40 MG, ON D1 AND D4, AND THEN TWICE WEEKLY (Q2W) UNTIL 3 CONSECUTIVE CLEAR CEREBROSPINAL FLUID (CSF)
     Route: 037
     Dates: start: 20210501, end: 20210519
  5. METHOTREXATE [Suspect]
     Active Substance: METHOTREXATE
     Indication: Acute lymphocytic leukaemia
     Dosage: 12 MG, ON D18 AND THEN Q2W UNTIL 3 CONSECUTIVE CLEAR CSF SPECIMENS
     Route: 037
     Dates: start: 20210519
  6. HYDROCORTISONE [Suspect]
     Active Substance: HYDROCORTISONE
     Indication: Acute lymphocytic leukaemia
     Dosage: 15 MG, OTHER
     Route: 037
     Dates: start: 20210519, end: 20210519

REACTIONS (3)
  - Colitis [Recovered/Resolved]
  - Sepsis [Recovered/Resolved]
  - Colitis [Recovered/Resolved]

NARRATIVE: CASE EVENT DATE: 20210527
